FAERS Safety Report 8070045-1 (Version None)
Quarter: 2012Q1

REPORT INFORMATION
  Report Type: 
  Country: None (occurrence: None)
  Receive Date: 20120125
  Receipt Date: 20120119
  Transmission Date: 20120608
  Serious: Yes (Hospitalization)
  Sender: FDA-Public Use
  Company Number: US-BAYER-2012-007118

PATIENT
  Age: 55 Year
  Sex: Male
  Weight: 106.2 kg

DRUGS (11)
  1. COMPAZINE [Concomitant]
     Dosage: UNK
  2. ACYCLOVIR [Concomitant]
     Dosage: UNK
  3. FOLATE SODIUM [Concomitant]
     Dosage: UNK
  4. CHLORHEXIDINE GLUCONATE [Concomitant]
     Dosage: UNK
  5. NORVASC [Concomitant]
     Dosage: UNK
  6. LASIX [Concomitant]
  7. MAGNESIUM OXIDE [Concomitant]
     Dosage: UNK
  8. MULTI-VITAMIN [Concomitant]
     Dosage: UNK
  9. SULFAMETHOXAZOLE AND TRIMETHOPRIM [Concomitant]
     Dosage: UNK
  10. SORAFENIB (RAF KINASE INHIBITOR) [Suspect]
     Indication: ACUTE MYELOID LEUKAEMIA (IN REMISSION)
     Dosage: 200 MG, BID
     Dates: start: 20110814, end: 20120113
  11. SYNTHROID [Concomitant]
     Dosage: UNK

REACTIONS (6)
  - RENAL FAILURE [None]
  - BLOOD ALBUMIN DECREASED [None]
  - SWELLING [None]
  - NEPHROTIC SYNDROME [None]
  - FATIGUE [None]
  - WEIGHT INCREASED [None]
